FAERS Safety Report 18593021 (Version 10)
Quarter: 2021Q3

REPORT INFORMATION
  Report Type: Spontaneous
  Country: GB (occurrence: GB)
  Receive Date: 20201209
  Receipt Date: 20210923
  Transmission Date: 20211014
  Serious: Yes (Life-Threatening, Hospitalization, Other)
  Sender: FDA-Public Use
  Company Number: GB-ADVANZ PHARMA-202012010626

PATIENT

DRUGS (16)
  1. LIPOSOMAL AMPHOTERICIN B [Concomitant]
     Active Substance: AMPHOTERICIN B
     Indication: SKIN ULCER
  2. AMPHOTERICIN [Concomitant]
     Active Substance: AMPHOTERICIN B
     Indication: SKIN ULCER
  3. MYCOPHENOLATE MOFETIL. [Suspect]
     Active Substance: MYCOPHENOLATE MOFETIL
     Indication: IMMUNOSUPPRESSANT DRUG THERAPY
     Dosage: UNK, UNKNOWN FREQ.
     Route: 065
  4. VORICONAZOLE. [Concomitant]
     Active Substance: VORICONAZOLE
     Indication: SKIN PLAQUE
  5. VORICONAZOLE. [Concomitant]
     Active Substance: VORICONAZOLE
     Indication: FUNGAL SKIN INFECTION
  6. VORICONAZOLE. [Concomitant]
     Active Substance: VORICONAZOLE
     Indication: SKIN ULCER
  7. FLUCYTOSINE. [Concomitant]
     Active Substance: FLUCYTOSINE
     Indication: SKIN PLAQUE
  8. LIPOSOMAL AMPHOTERICIN B [Concomitant]
     Active Substance: AMPHOTERICIN B
     Indication: DISSEMINATED TRICHOSPORONOSIS
     Dosage: UNK
     Route: 042
  9. PREDNISOLONE. [Suspect]
     Active Substance: PREDNISOLONE
     Indication: IMMUNOSUPPRESSANT DRUG THERAPY
     Dosage: UNK, UNKNOWN FREQ.
     Route: 065
  10. PROGRAF [Suspect]
     Active Substance: TACROLIMUS
     Indication: IMMUNOSUPPRESSANT DRUG THERAPY
     Dosage: 1 MG, BID (1 MG, TWICE DAILY (VARIABLE DOSING))
     Route: 048
     Dates: start: 20171108
  11. LIPOSOMAL AMPHOTERICIN B [Concomitant]
     Active Substance: AMPHOTERICIN B
     Indication: SKIN PLAQUE
  12. AMPHOTERICIN [Concomitant]
     Active Substance: AMPHOTERICIN B
     Indication: DISSEMINATED TRICHOSPORONOSIS
     Dosage: UNK
  13. AMPHOTERICIN [Concomitant]
     Active Substance: AMPHOTERICIN B
     Indication: SKIN PLAQUE
     Dosage: UNK
  14. FLUCYTOSINE. [Concomitant]
     Active Substance: FLUCYTOSINE
     Indication: DISSEMINATED TRICHOSPORONOSIS
     Dosage: UNK
     Route: 042
  15. FLUCYTOSINE. [Concomitant]
     Active Substance: FLUCYTOSINE
     Indication: SKIN ULCER
  16. VORICONAZOLE. [Concomitant]
     Active Substance: VORICONAZOLE
     Indication: DISSEMINATED TRICHOSPORONOSIS
     Dosage: UNK
     Route: 042

REACTIONS (7)
  - Metastases to meninges [Unknown]
  - Skin ulcer [Recovering/Resolving]
  - Disseminated trichosporonosis [Recovered/Resolved]
  - Aortic aneurysm [Unknown]
  - Endophthalmitis [Unknown]
  - Skin plaque [Unknown]
  - Fungal skin infection [Recovered/Resolved]

NARRATIVE: CASE EVENT DATE: 201903
